FAERS Safety Report 25956687 (Version 1)
Quarter: 2025Q4

REPORT INFORMATION
  Report Type: Spontaneous
  Country: US (occurrence: US)
  Receive Date: 20251024
  Receipt Date: 20251024
  Transmission Date: 20260117
  Serious: No
  Sender: HISAMITSU PHARMACEUTICAL CO., INC.
  Company Number: US-HISAMITSU PHARMACEUTICAL CO., INC.-2025-NOV-US001516

PATIENT

DRUGS (2)
  1. SECUADO [Suspect]
     Active Substance: ASENAPINE
     Indication: Bipolar disorder
     Dosage: UNKNOWN
     Route: 062
  2. SECUADO [Suspect]
     Active Substance: ASENAPINE
     Indication: Off label use

REACTIONS (3)
  - Mania [Unknown]
  - Application site pain [Unknown]
  - Off label use [Not Recovered/Not Resolved]
